FAERS Safety Report 8247202-4 (Version None)
Quarter: 2012Q1

REPORT INFORMATION
  Report Type: 
  Country: None (occurrence: None)
  Receive Date: 20120330
  Receipt Date: 20120322
  Transmission Date: 20120608
  Serious: Yes (Hospitalization)
  Sender: FDA-Public Use
  Company Number: US-BAYER-201028028NA

PATIENT
  Age: 36 Year
  Sex: Female
  Weight: 125.6 kg

DRUGS (2)
  1. PROTONIX [Concomitant]
     Dosage: 40 MG, UNK
     Dates: start: 20070406
  2. YASMIN [Suspect]
     Dosage: UNK
     Route: 048
     Dates: start: 20070101, end: 20070709

REACTIONS (9)
  - GALLBLADDER DISORDER [None]
  - CHOLECYSTITIS [None]
  - VOMITING [None]
  - PULMONARY EMBOLISM [None]
  - PAIN [None]
  - VENA CAVA THROMBOSIS [None]
  - MESENTERIC VEIN THROMBOSIS [None]
  - NAUSEA [None]
  - ABDOMINAL PAIN [None]
